FAERS Safety Report 20994348 (Version 18)
Quarter: 2025Q1

REPORT INFORMATION
  Report Type: Spontaneous
  Country: IN (occurrence: IN)
  Receive Date: 20220622
  Receipt Date: 20250313
  Transmission Date: 20250409
  Serious: Yes (Other)
  Sender: PFIZER
  Company Number: IN-PFIZER INC-2020498078

PATIENT
  Age: 61 Year
  Sex: Male
  Weight: 67.2 kg

DRUGS (11)
  1. SUTENT [Suspect]
     Active Substance: SUNITINIB MALATE
     Indication: Gastrointestinal stromal tumour
     Route: 048
     Dates: start: 20201212
  2. SUTENT [Suspect]
     Active Substance: SUNITINIB MALATE
     Route: 048
     Dates: end: 20210810
  3. SUTENT [Suspect]
     Active Substance: SUNITINIB MALATE
     Route: 048
  4. SUTENT [Suspect]
     Active Substance: SUNITINIB MALATE
     Route: 048
  5. SUTENT [Suspect]
     Active Substance: SUNITINIB MALATE
     Route: 048
     Dates: end: 202302
  6. SUTENT [Suspect]
     Active Substance: SUNITINIB MALATE
     Route: 048
     Dates: start: 202303
  7. SUTENT [Suspect]
     Active Substance: SUNITINIB MALATE
     Route: 048
  8. SUTENT [Suspect]
     Active Substance: SUNITINIB MALATE
     Route: 048
  9. SUTENT [Suspect]
     Active Substance: SUNITINIB MALATE
     Route: 048
  10. IMATINIB [Suspect]
     Active Substance: IMATINIB
     Dosage: 1 TAB MORNING AND 1 TAB EVENING DAILY
  11. AMOXICILLIN\CLAVULANATE POTASSIUM [Concomitant]
     Active Substance: AMOXICILLIN\CLAVULANATE POTASSIUM
     Dosage: 1GM EVERY 12HRS X 7DAYS

REACTIONS (26)
  - Hypothyroidism [Not Recovered/Not Resolved]
  - Red blood cell sedimentation rate increased [Unknown]
  - Gastrointestinal stromal tumour [Unknown]
  - Malignant neoplasm progression [Unknown]
  - Mouth ulceration [Not Recovered/Not Resolved]
  - Diarrhoea [Recovered/Resolved]
  - Weight fluctuation [Unknown]
  - Blood pressure increased [Not Recovered/Not Resolved]
  - Skin toxicity [Unknown]
  - Palmar-plantar erythrodysaesthesia syndrome [Recovered/Resolved]
  - Constipation [Unknown]
  - Haemoglobin decreased [Unknown]
  - Blood urea increased [Unknown]
  - Aspartate aminotransferase increased [Unknown]
  - Abdominal discomfort [Unknown]
  - Flatulence [Not Recovered/Not Resolved]
  - Blood creatinine increased [Unknown]
  - Dyspepsia [Not Recovered/Not Resolved]
  - Asthenia [Recovered/Resolved]
  - Dyspnoea [Unknown]
  - Decreased appetite [Unknown]
  - Skin hypopigmentation [Unknown]
  - Lung disorder [Recovered/Resolved]
  - White blood cell count decreased [Unknown]
  - Haemorrhoids [Unknown]
  - Off label use [Unknown]

NARRATIVE: CASE EVENT DATE: 20210125
